FAERS Safety Report 7704428-3 (Version None)
Quarter: 2011Q3

REPORT INFORMATION
  Report Type: 
  Country: None (occurrence: None)
  Receive Date: 20110823
  Receipt Date: 20110812
  Transmission Date: 20111222
  Serious: Yes (Hospitalization, Other)
  Sender: FDA-Public Use
  Company Number: CA-JNJFOC-20110807244

PATIENT
  Sex: Female
  Weight: 36 kg

DRUGS (1)
  1. REMICADE [Suspect]
     Indication: CROHN'S DISEASE
     Route: 042
     Dates: start: 20110701

REACTIONS (3)
  - GASTROINTESTINAL ULCER [None]
  - VIRAL INFECTION [None]
  - HAEMOGLOBIN DECREASED [None]
